FAERS Safety Report 15490674 (Version 1)
Quarter: 2018Q4

REPORT INFORMATION
  Report Type: Spontaneous
  Country: JP (occurrence: JP)
  Receive Date: 20181011
  Receipt Date: 20181011
  Transmission Date: 20190205
  Serious: Yes (Other)
  Sender: FDA-Public Use
  Company Number: JP-ALLERGAN-1846795US

PATIENT
  Age: 23 Year
  Sex: Female

DRUGS (2)
  1. FML [Suspect]
     Active Substance: FLUOROMETHOLONE
     Indication: HORDEOLUM
     Dosage: 1 GTT, QID
     Route: 047
     Dates: start: 20180915
  2. GATIFLO [Suspect]
     Active Substance: GATIFLOXACIN
     Indication: HORDEOLUM
     Dosage: 1 GTT, QID
     Route: 047
     Dates: start: 20180915, end: 20180917

REACTIONS (2)
  - Erythema [Unknown]
  - Eyelid oedema [Recovering/Resolving]

NARRATIVE: CASE EVENT DATE: 20180915
